FAERS Safety Report 24988968 (Version 1)
Quarter: 2025Q1

REPORT INFORMATION
  Report Type: Spontaneous
  Country: RO (occurrence: RO)
  Receive Date: 20250220
  Receipt Date: 20250220
  Transmission Date: 20250408
  Serious: Yes (Death, Hospitalization)
  Sender: ALNYLAM PHARMACEUTICALS
  Company Number: RO-ALNYLAM PHARMACEUTICALS, INC.-ALN-2025-001155

PATIENT

DRUGS (8)
  1. ONPATTRO [Suspect]
     Active Substance: PATISIRAN SODIUM
     Indication: Acquired ATTR amyloidosis
     Dosage: 300 MICROGRAM/KILOGRAM, Q3W
     Route: 042
     Dates: start: 20211103, end: 20211103
  2. ONPATTRO [Suspect]
     Active Substance: PATISIRAN SODIUM
     Dosage: UNK UNK, Q3W
     Route: 042
     Dates: start: 20241008, end: 20241008
  3. VITAMIN A [Concomitant]
     Active Substance: VITAMIN A
     Indication: Amyloidosis
     Dosage: 5000 INTERNATIONAL UNIT, QOD
     Route: 065
  4. Silivit [Concomitant]
     Indication: Amyloidosis
     Dosage: 1 TB, QD
     Route: 065
  5. URSOLIN [Concomitant]
     Indication: Amyloidosis
     Dosage: 500 MILLIGRAM, QD
     Route: 065
  6. Milgamma [Concomitant]
     Indication: Amyloidosis
     Dosage: 100 MILLIGRAM, QD
     Route: 065
  7. GABAPENTIN [Concomitant]
     Active Substance: GABAPENTIN
     Indication: Amyloidosis
     Dosage: 100 MILLIGRAM, QD
     Route: 065
  8. ACETAMINOPHEN\TRAMADOL HYDROCHLORIDE [Concomitant]
     Active Substance: ACETAMINOPHEN\TRAMADOL HYDROCHLORIDE
     Indication: Amyloidosis
     Route: 065

REACTIONS (4)
  - Cardiac arrest [Fatal]
  - Cardiac failure [Unknown]
  - Peripheral sensory neuropathy [Unknown]
  - Carpal tunnel syndrome [Unknown]

NARRATIVE: CASE EVENT DATE: 20240101
